FAERS Safety Report 8325526-X (Version None)
Quarter: 2012Q2

REPORT INFORMATION
  Report Type: 
  Country: None (occurrence: None)
  Receive Date: 20120501
  Receipt Date: 20120423
  Transmission Date: 20120825
  Serious: Yes (Other)
  Sender: FDA-Public Use
  Company Number: US-PFIZER INC-2012098489

PATIENT
  Sex: Female
  Weight: 63.492 kg

DRUGS (4)
  1. EFFEXOR XR [Suspect]
     Indication: DEPRESSION
     Dosage: 150 MG, 3X/DAY
     Dates: start: 20050101, end: 20120420
  2. VENLAFAXINE HCL [Suspect]
     Dosage: UNK
  3. XANAX XR [Concomitant]
     Indication: ANXIETY
     Dosage: 2 MG, 3X/DAY
  4. EFFEXOR XR [Suspect]
     Dosage: UNK
     Dates: start: 20120423

REACTIONS (3)
  - PRESYNCOPE [None]
  - HEAD DISCOMFORT [None]
  - NAUSEA [None]
